FAERS Safety Report 7358241-X (Version None)
Quarter: 2011Q1

REPORT INFORMATION
  Report Type: 
  Country: None (occurrence: None)
  Receive Date: 20110317
  Receipt Date: 20110309
  Transmission Date: 20110831
  Serious: Yes (Other)
  Sender: FDA-Public Use
  Company Number: US-ROCHE-764650

PATIENT
  Age: 10 Year
  Sex: Female

DRUGS (2)
  1. INSULIN [Concomitant]
  2. TAMIFLU [Suspect]
     Route: 065

REACTIONS (3)
  - AGITATION [None]
  - DEPRESSIVE SYMPTOM [None]
  - DELIRIUM [None]
